FAERS Safety Report 9377880 (Version 1)
Quarter: 2013Q2

REPORT INFORMATION
  Report Type: Spontaneous
  Country: US (occurrence: None)
  Receive Date: 20130625
  Receipt Date: 20130625
  Transmission Date: 20140414
  Serious: Yes (Other)
  Sender: FDA-Public Use
  Company Number: USA/USA/13/0030076

PATIENT
  Age: 76 Year
  Sex: Male
  Weight: 86.18 kg

DRUGS (7)
  1. LANSOPRAZOLE [Suspect]
     Indication: GASTROOESOPHAGEAL REFLUX DISEASE
     Route: 048
     Dates: end: 201306
  2. IBUPROFEN (IBUPROFEN) [Concomitant]
  3. EPLERENONE (EPLERENONE) [Concomitant]
  4. ATORVASTATIN (ATORVASTATIN) [Concomitant]
  5. AMLODIPINE BESYLATE (AMLODIPINE BESILATE) [Concomitant]
  6. LISINOPRIL (LISINOPRIL) [Concomitant]
  7. MAGNEIUM (MAGNEIUM) [Concomitant]

REACTIONS (1)
  - Sick sinus syndrome [None]
